FAERS Safety Report 7351791-1 (Version None)
Quarter: 2011Q1

REPORT INFORMATION
  Report Type: 
  Country: None (occurrence: None)
  Receive Date: 20110315
  Receipt Date: 20100921
  Transmission Date: 20110831
  Serious: Yes (Hospitalization, Other)
  Sender: FDA-Public Use
  Company Number: US-BAYER-201033771NA

PATIENT
  Sex: Female
  Weight: 47.619 kg

DRUGS (8)
  1. YASMIN [Suspect]
     Indication: MENSTRUAL CYCLE MANAGEMENT
     Dosage: UNK UNK, UNK
     Route: 048
     Dates: start: 20051109, end: 20080610
  2. ZOLOFT [Concomitant]
  3. ADVIL LIQUI-GELS [Concomitant]
  4. OCELLA [Suspect]
     Indication: ORAL CONTRACEPTION
  5. UNCODEABLE ^UNCLASSIFIABLE^ [Concomitant]
  6. YAZ [Suspect]
     Indication: ORAL CONTRACEPTION
     Dosage: UNK UNK, UNK
     Route: 048
  7. OCELLA [Suspect]
     Indication: MENSTRUAL CYCLE MANAGEMENT
     Dosage: UNK UNK, UNK
     Route: 048
     Dates: start: 20080715, end: 20081007
  8. YASMIN [Suspect]
     Indication: CONTRACEPTION

REACTIONS (4)
  - PULMONARY INFARCTION [None]
  - CHEST PAIN [None]
  - PULMONARY EMBOLISM [None]
  - DYSPNOEA [None]
